FAERS Safety Report 7328830-7 (Version None)
Quarter: 2011Q1

REPORT INFORMATION
  Report Type: 
  Country: None (occurrence: None)
  Receive Date: 20110303
  Receipt Date: 20110222
  Transmission Date: 20110831
  Serious: Yes (Other)
  Sender: FDA-Public Use
  Company Number: US-AMGEN-USASP2010009484

PATIENT
  Age: 51 Year
  Sex: Female

DRUGS (9)
  1. CLONIDINE [Concomitant]
     Dosage: UNK
  2. MYCOPHENOLATE MOFETIL [Concomitant]
     Dosage: UNK
  3. PROCRIT [Suspect]
     Indication: RENAL FAILURE CHRONIC
     Dosage: 20000 IU, QWK
     Route: 058
     Dates: start: 20100101
  4. TACROLIMUS [Concomitant]
     Dosage: UNK
  5. PREDNISONE [Concomitant]
     Dosage: UNK
  6. METOPROLOL [Concomitant]
  7. PROCRIT [Suspect]
     Dosage: 15000 IU, 2 TIMES/WK
  8. LOVASTATIN [Concomitant]
     Dosage: UNK
  9. PROCRIT [Suspect]
     Dosage: 10000 IU, 3 TIMES/WK

REACTIONS (1)
  - APLASIA PURE RED CELL [None]
